FAERS Safety Report 24105775 (Version 1)
Quarter: 2024Q3

REPORT INFORMATION
  Report Type: Report from Study
  Country: US (occurrence: None)
  Receive Date: 20240717
  Receipt Date: 20240717
  Transmission Date: 20241017
  Serious: Yes (Other)
  Sender: ASTRAZENECA
  Company Number: 2021A857138

PATIENT
  Sex: Female

DRUGS (1)
  1. LYNPARZA [Suspect]
     Active Substance: OLAPARIB
     Indication: Ovarian cancer
     Route: 048
     Dates: start: 20210410

REACTIONS (6)
  - Fall [Unknown]
  - Clavicle fracture [Unknown]
  - Pelvic fracture [Unknown]
  - Head injury [Unknown]
  - Skin injury [Unknown]
  - Urinary tract infection [Unknown]
